FAERS Safety Report 14340724 (Version 1)
Quarter: 2018Q1

REPORT INFORMATION
  Report Type: Report from Study
  Country: None (occurrence: CO)
  Receive Date: 20180101
  Receipt Date: 20180101
  Transmission Date: 20180509
  Serious: Yes (Death)
  Sender: FDA-Public Use
  Company Number: CO-ABBVIE-17S-036-2208129-00

PATIENT
  Age: 90 Year
  Sex: Male

DRUGS (1)
  1. ZEMPLAR [Suspect]
     Active Substance: PARICALCITOL
     Indication: HYPERPARATHYROIDISM SECONDARY
     Route: 048
     Dates: start: 20131015

REACTIONS (5)
  - Abdominal pain [Fatal]
  - Myocardial infarction [Fatal]
  - Pyrexia [Fatal]
  - Gastric ulcer haemorrhage [Fatal]
  - Decreased appetite [Fatal]

NARRATIVE: CASE EVENT DATE: 20171218
